FAERS Safety Report 25227239 (Version 1)
Quarter: 2025Q2

REPORT INFORMATION
  Report Type: Spontaneous
  Country: US (occurrence: US)
  Receive Date: 20250422
  Receipt Date: 20250422
  Transmission Date: 20250717
  Serious: Yes (Other)
  Sender: VERTEX
  Company Number: US-VERTEX PHARMACEUTICALS-2025-006093

PATIENT

DRUGS (4)
  1. IVACAFTOR\TEZACAFTOR [Suspect]
     Active Substance: IVACAFTOR\TEZACAFTOR
     Indication: Cystic fibrosis
     Route: 048
  2. SALINE [Concomitant]
     Active Substance: SODIUM CHLORIDE
  3. SODIUM CHLORIDE [Concomitant]
     Active Substance: SODIUM CHLORIDE
  4. DORNASE ALFA [Concomitant]
     Active Substance: DORNASE ALFA

REACTIONS (11)
  - Lung transplant [Unknown]
  - Nasal septum deviation [Unknown]
  - Pseudomonas test positive [Unknown]
  - Nasal polyps [Unknown]
  - Cystic fibrosis related diabetes [Unknown]
  - Hyposmia [Unknown]
  - Pancreatic failure [Unknown]
  - Depression [Unknown]
  - Anxiety [Unknown]
  - Lung disorder [Unknown]
  - Headache [Unknown]
